FAERS Safety Report 16994067 (Version 2)
Quarter: 2019Q4

REPORT INFORMATION
  Report Type: Spontaneous
  Country: GR (occurrence: GR)
  Receive Date: 20191105
  Receipt Date: 20191204
  Transmission Date: 20200122
  Serious: Yes (Hospitalization)
  Sender: FDA-Public Use
  Company Number: NVSC2019GR022813

PATIENT
  Age: 82 Year
  Sex: Female

DRUGS (8)
  1. CILROTON [Concomitant]
     Indication: PRODUCT USED FOR UNKNOWN INDICATION
     Dosage: UNK
     Route: 065
  2. SYMMETREL [Suspect]
     Active Substance: AMANTADINE HYDROCHLORIDE
     Dosage: 100 MG, QOD (FOR 3 WEEK)
     Route: 065
  3. SYMMETREL [Suspect]
     Active Substance: AMANTADINE HYDROCHLORIDE
     Indication: PARKINSON^S DISEASE
     Dosage: 200 MG, QD
     Route: 065
  4. LASIX [Concomitant]
     Active Substance: FUROSEMIDE
     Indication: PRODUCT USED FOR UNKNOWN INDICATION
     Dosage: UNK
     Route: 065
  5. SYMMETREL [Suspect]
     Active Substance: AMANTADINE HYDROCHLORIDE
     Dosage: 100 MG (AFTER 3 DAYS)
     Route: 065
  6. COVERSYL [Concomitant]
     Active Substance: PERINDOPRIL
     Indication: PRODUCT USED FOR UNKNOWN INDICATION
     Dosage: UNK
     Route: 065
  7. SYMMETREL [Suspect]
     Active Substance: AMANTADINE HYDROCHLORIDE
     Dosage: 100 MG, QD
     Route: 065
  8. MADOPAR [Concomitant]
     Active Substance: BENSERAZIDE HYDROCHLORIDE\LEVODOPA
     Indication: PRODUCT USED FOR UNKNOWN INDICATION
     Dosage: UNK
     Route: 065

REACTIONS (6)
  - Musculoskeletal stiffness [Recovered/Resolved]
  - Dysarthria [Recovered/Resolved]
  - Blood pressure increased [Recovered/Resolved]
  - Ocular hyperaemia [Recovered/Resolved]
  - Pyrexia [Recovered/Resolved]
  - Tachycardia [Recovered/Resolved]
